FAERS Safety Report 8360303-5 (Version None)
Quarter: 2012Q2

REPORT INFORMATION
  Report Type: 
  Country: None (occurrence: None)
  Receive Date: 20120515
  Receipt Date: 20120504
  Transmission Date: 20120825
  Serious: Yes (Other)
  Sender: FDA-Public Use
  Company Number: US-NOVOPROD-347210

PATIENT
  Age: 66 Year
  Sex: Female
  Weight: 97.052 kg

DRUGS (2)
  1. VICTOZA [Suspect]
     Indication: HYPERGLYCAEMIA
     Dosage: 0.6 MG, QD
     Route: 058
     Dates: start: 20110901, end: 20110905
  2. VICTOZA [Suspect]
     Dosage: 1.8 MG, QD
     Route: 058
     Dates: start: 20110905, end: 20110908

REACTIONS (1)
  - CHOLELITHIASIS [None]
